FAERS Safety Report 8979033 (Version 1)
Quarter: 2012Q4

REPORT INFORMATION
  Report Type: Spontaneous
  Country: US (occurrence: None)
  Receive Date: 20121218
  Receipt Date: 20121218
  Transmission Date: 20130627
  Serious: Yes (Death)
  Sender: FDA-Public Use
  Company Number: None

PATIENT
  Age: 37 Year
  Sex: Female
  Weight: 148 kg

DRUGS (3)
  1. MICARDIS [Suspect]
     Indication: HYPERTENSION
     Dosage: DURATION OF PREGNANCY
     Route: 048
  2. OMEPRAZOLE [Concomitant]
  3. YAZ [Concomitant]

REACTIONS (2)
  - Exposure during pregnancy [None]
  - Premature delivery [None]
